FAERS Safety Report 9365208 (Version 2)
Quarter: 2013Q3

REPORT INFORMATION
  Report Type: Report from Study
  Country: US (occurrence: US)
  Receive Date: 20130624
  Receipt Date: 20130705
  Transmission Date: 20140515
  Serious: Yes (Hospitalization, Other)
  Sender: FDA-Public Use
  Company Number: US-ABBOTT-13P-163-1105891-00

PATIENT
  Age: 46 Year
  Sex: Female

DRUGS (13)
  1. HUMIRA [Suspect]
     Indication: ANKYLOSING SPONDYLITIS
     Dates: start: 200905, end: 200906
  2. HUMIRA [Suspect]
     Dates: start: 200906, end: 201105
  3. LYRICA [Concomitant]
     Indication: PRODUCT USED FOR UNKNOWN INDICATION
  4. ACYCLOVIR [Concomitant]
     Indication: PRODUCT USED FOR UNKNOWN INDICATION
  5. METOPROLOL [Concomitant]
     Indication: PRODUCT USED FOR UNKNOWN INDICATION
  6. LEVOTHYROXINE [Concomitant]
     Indication: PRODUCT USED FOR UNKNOWN INDICATION
     Dosage: ALTERNATING DAY WITH 200 MCG
  7. LEVOTHYROXINE [Concomitant]
     Dosage: ALTERNATIVING WITH 175 MCG
  8. TIZANIDINE HYDROCHLORIDE [Concomitant]
     Indication: PRODUCT USED FOR UNKNOWN INDICATION
     Dosage: QHS
  9. KLOR-KON [Concomitant]
     Indication: PRODUCT USED FOR UNKNOWN INDICATION
  10. PROMETHAZINE [Concomitant]
     Indication: PRODUCT USED FOR UNKNOWN INDICATION
  11. POTASSIUM [Concomitant]
     Indication: PRODUCT USED FOR UNKNOWN INDICATION
  12. POTASSIUM [Concomitant]
  13. POTASSIUM [Concomitant]

REACTIONS (52)
  - Enuresis [Unknown]
  - Meniscus injury [Unknown]
  - Drug effect incomplete [Unknown]
  - Diarrhoea [Not Recovered/Not Resolved]
  - Asthma [Not Recovered/Not Resolved]
  - Neoplasm [Not Recovered/Not Resolved]
  - Pain [Not Recovered/Not Resolved]
  - Oedema [Not Recovered/Not Resolved]
  - Nodule [Not Recovered/Not Resolved]
  - Uveitis [Not Recovered/Not Resolved]
  - Iritis [Not Recovered/Not Resolved]
  - Arthropathy [Not Recovered/Not Resolved]
  - Aptyalism [Unknown]
  - Lacrimal disorder [Unknown]
  - Vaginal disorder [Unknown]
  - Candida infection [Unknown]
  - Arthritis [Unknown]
  - Fall [Unknown]
  - Neoplasm [Not Recovered/Not Resolved]
  - Cognitive disorder [Unknown]
  - Spinal laminectomy [Unknown]
  - Device failure [Unknown]
  - Spinal disorder [Unknown]
  - Nervous system disorder [Unknown]
  - Aphasia [Unknown]
  - Disturbance in attention [Unknown]
  - Muscle disorder [Unknown]
  - Unevaluable event [Unknown]
  - Somnolence [Unknown]
  - Neuropathy peripheral [Unknown]
  - Headache [Recovered/Resolved]
  - Meningitis [Unknown]
  - Tinnitus [Unknown]
  - Protein total increased [Unknown]
  - Pulmonary mass [Unknown]
  - Lymphadenopathy [Unknown]
  - Impaired gastric emptying [Unknown]
  - Vomiting [Unknown]
  - Weight decreased [Unknown]
  - Viral infection [Unknown]
  - Lipoma [Not Recovered/Not Resolved]
  - VIIth nerve paralysis [Unknown]
  - Bursitis [Unknown]
  - Loss of consciousness [Unknown]
  - Loss of control of legs [Unknown]
  - Muscle spasms [Unknown]
  - Loss of consciousness [Unknown]
  - Blood creatine phosphokinase increased [Unknown]
  - Cardiac enzymes increased [Unknown]
  - Hepatomegaly [Unknown]
  - Back pain [Unknown]
  - Ejection fraction decreased [Unknown]
